FAERS Safety Report 6680729-5 (Version None)
Quarter: 2010Q2

REPORT INFORMATION
  Report Type: 
  Country: None (occurrence: None)
  Receive Date: 20100414
  Receipt Date: 20100401
  Transmission Date: 20101027
  Serious: Yes (Other)
  Sender: FDA-Public Use
  Company Number: PHHY2010BR20141

PATIENT
  Sex: Male

DRUGS (5)
  1. DIOVAN [Suspect]
     Indication: HYPERTENSION
     Dosage: 1 TABLET DAILY
     Route: 048
     Dates: end: 20100331
  2. METFORMIN HCL [Concomitant]
     Indication: TYPE 2 DIABETES MELLITUS
     Dosage: UNK
     Route: 048
  3. DIAZEPAM [Concomitant]
     Dosage: UNK
     Route: 048
  4. PANTOPRAZOLE [Concomitant]
     Dosage: UNK
     Route: 048
  5. VASOGARD [Concomitant]
     Dosage: UNK
     Route: 048

REACTIONS (4)
  - ANURIA [None]
  - RENAL FAILURE CHRONIC [None]
  - SWELLING [None]
  - URINARY RETENTION [None]
